FAERS Safety Report 6064715-4 (Version None)
Quarter: 2009Q1

REPORT INFORMATION
  Report Type: 
  Country: None (occurrence: None)
  Receive Date: 20090204
  Receipt Date: 20080909
  Transmission Date: 20090719
  Serious: No
  Sender: FDA-Public Use
  Company Number: A0739238A

PATIENT

DRUGS (2)
  1. ARIXTRA [Suspect]
  2. UNKNOWN [Concomitant]

REACTIONS (2)
  - ACCIDENTAL NEEDLE STICK [None]
  - PRODUCT QUALITY ISSUE [None]
